FAERS Safety Report 24741504 (Version 1)
Quarter: 2024Q4

REPORT INFORMATION
  Report Type: Spontaneous
  Country: TR (occurrence: TR)
  Receive Date: 20241217
  Receipt Date: 20241217
  Transmission Date: 20250115
  Serious: Yes (Other)
  Sender: ROCHE
  Company Number: TR-ROCHE-10000153727

PATIENT
  Age: 63 Year
  Sex: Female

DRUGS (1)
  1. ATEZOLIZUMAB [Suspect]
     Active Substance: ATEZOLIZUMAB
     Indication: Product used for unknown indication
     Route: 065

REACTIONS (5)
  - Lichen planus [Unknown]
  - Hypothyroidism [Unknown]
  - Cough [Unknown]
  - Pneumonitis [Unknown]
  - Off label use [Unknown]
